FAERS Safety Report 14525639 (Version 1)
Quarter: 2018Q1

REPORT INFORMATION
  Report Type: Spontaneous
  Country: US (occurrence: US)
  Receive Date: 20180211
  Receipt Date: 20180211
  Transmission Date: 20180509
  Serious: Yes (Other)
  Sender: FDA-Public Use
  Company Number: None

PATIENT
  Sex: Female
  Weight: 84.6 kg

DRUGS (5)
  1. XANAX [Concomitant]
     Active Substance: ALPRAZOLAM
  2. SLEEP AID [Concomitant]
     Active Substance: DIPHENHYDRAMINE HYDROCHLORIDE\DOXYLAMINE SUCCINATE
  3. OSELTAMIVIR [Suspect]
     Active Substance: OSELTAMIVIR
     Indication: INFLUENZA
     Dosage: ?          QUANTITY:5 TABLET(S);?
     Route: 048
     Dates: start: 20180123, end: 20180127
  4. ESTROGEN [Concomitant]
     Active Substance: ESTROGENS
  5. OMEPRESOLE [Concomitant]

REACTIONS (4)
  - Pruritus [None]
  - Urticaria [None]
  - Therapy non-responder [None]
  - Hypersensitivity [None]

NARRATIVE: CASE EVENT DATE: 20180123
